FAERS Safety Report 9025550 (Version 1)
Quarter: 2013Q1

REPORT INFORMATION
  Report Type: Spontaneous
  Country: US (occurrence: US)
  Receive Date: 20130122
  Receipt Date: 20130122
  Transmission Date: 20140127
  Serious: No
  Sender: FDA-Public Use
  Company Number: US-BAYER-2013-005678

PATIENT
  Age: 12 Year
  Sex: Male

DRUGS (1)
  1. MAGNEVIST [Suspect]
     Dosage: 15 ML, UNK
     Dates: start: 20121227

REACTIONS (2)
  - Nausea [None]
  - Vomiting [Recovered/Resolved]
